FAERS Safety Report 18490704 (Version 2)
Quarter: 2020Q4

REPORT INFORMATION
  Report Type: Spontaneous
  Country: US (occurrence: US)
  Receive Date: 20201111
  Receipt Date: 20201119
  Transmission Date: 20210114
  Serious: Yes (Other)
  Sender: FDA-Public Use
  Company Number: NVSC2020US300920

PATIENT
  Age: 72 Year
  Sex: Male

DRUGS (6)
  1. HYDROCODONE/PARACETAMOL [Concomitant]
     Active Substance: ACETAMINOPHEN\HYDROCODONE BITARTRATE
     Indication: CERVICAL RADICULOPATHY
     Dosage: 7.5/750 MG, TID
     Route: 065
  2. REGLAN [Concomitant]
     Active Substance: METOCLOPRAMIDE HYDROCHLORIDE
     Indication: SYMPTOMATIC TREATMENT
     Dosage: 5 MG INTRAVENOUS
     Route: 042
  3. ERYTHROMYCIN. [Suspect]
     Active Substance: ERYTHROMYCIN
     Indication: IMPAIRED GASTRIC EMPTYING
     Dosage: 300 MG, Q8H
     Route: 065
  4. OXYCODONE [Concomitant]
     Active Substance: OXYCODONE
     Indication: PAIN
     Dosage: UNK
     Route: 065
  5. ONDANSETRON [Suspect]
     Active Substance: ONDANSETRON
     Indication: IMPAIRED GASTRIC EMPTYING
     Dosage: UNK
     Route: 065
  6. HYDROMORPHONE [Concomitant]
     Active Substance: HYDROMORPHONE
     Indication: PAIN
     Dosage: UNK
     Route: 065

REACTIONS (2)
  - Product use in unapproved indication [Unknown]
  - Impaired gastric emptying [Unknown]
